FAERS Safety Report 5219175-X (Version None)
Quarter: 2007Q1

REPORT INFORMATION
  Report Type: 
  Country: None (occurrence: None)
  Receive Date: 20070125
  Receipt Date: 20070125
  Transmission Date: 20070707
  Serious: Yes (Other)
  Sender: FDA-Public Use
  Company Number: DE-GLAXOSMITHKLINE-D0052029A

PATIENT
  Age: 66 Year
  Sex: Female
  Weight: 64 kg

DRUGS (2)
  1. VIANI [Suspect]
     Indication: CHRONIC OBSTRUCTIVE PULMONARY DISEASE
     Route: 055
     Dates: start: 20060501
  2. HERCEPTIN [Suspect]
     Indication: BREAST CANCER
     Dosage: 2MGK SEE DOSAGE TEXT
     Route: 065
     Dates: start: 20061001

REACTIONS (2)
  - BREAST CANCER [None]
  - SKIN HAEMORRHAGE [None]
